FAERS Safety Report 9048699 (Version 1)
Quarter: 2013Q1

REPORT INFORMATION
  Report Type: Spontaneous
  Country: US (occurrence: US)
  Receive Date: 20130204
  Receipt Date: 20130204
  Transmission Date: 20140127
  Serious: No
  Sender: FDA-Public Use
  Company Number: US-AMGEN-USASP2013000868

PATIENT
  Sex: Female

DRUGS (2)
  1. ENBREL [Suspect]
     Indication: RHEUMATOID ARTHRITIS
     Dosage: UNK
     Dates: start: 20090826
  2. METHOTREXATE [Concomitant]
     Dosage: UNK

REACTIONS (4)
  - Hypersensitivity [Recovered/Resolved]
  - Sinus congestion [Recovered/Resolved]
  - Sinus headache [Recovered/Resolved]
  - Paranasal sinus hypersecretion [Recovered/Resolved]
